FAERS Safety Report 20126797 (Version 1)
Quarter: 2021Q4

REPORT INFORMATION
  Report Type: Spontaneous
  Country: US (occurrence: None)
  Receive Date: 20211129
  Receipt Date: 20211129
  Transmission Date: 20220303
  Serious: No
  Sender: FDA-Public Use
  Company Number: None

PATIENT
  Age: 38 Year
  Sex: Male
  Weight: 102 kg

DRUGS (1)
  1. CASIRIVIMAB\IMDEVIMAB [Suspect]
     Active Substance: CASIRIVIMAB\IMDEVIMAB
     Indication: COVID-19
     Dosage: FREQUENCY : ONCE;?
     Route: 042
     Dates: start: 20211030, end: 20211030

REACTIONS (5)
  - Paranasal sinus discomfort [None]
  - Sinus congestion [None]
  - Periorbital oedema [None]
  - Cough [None]
  - Wheezing [None]

NARRATIVE: CASE EVENT DATE: 20211101
